FAERS Safety Report 8727398 (Version 12)
Quarter: 2014Q3

REPORT INFORMATION
  Report Type: Report from Study
  Country: GB (occurrence: GB)
  Receive Date: 20120816
  Receipt Date: 20140903
  Transmission Date: 20150326
  Serious: Yes (Death, Life-Threatening, Hospitalization, Other)
  Sender: FDA-Public Use
  Company Number: GB-TEVA-351866USA

PATIENT
  Age: 81 Year
  Sex: Female
  Weight: 72.6 kg

DRUGS (25)
  1. OFATUMUMAB [Suspect]
     Active Substance: OFATUMUMAB
     Dosage: UNKNOWN/D
     Route: 041
     Dates: start: 20120704, end: 20120807
  2. FLUCONAZOLE. [Concomitant]
     Active Substance: FLUCONAZOLE
     Indication: CHRONIC LYMPHOCYTIC LEUKAEMIA
     Route: 048
     Dates: start: 20120530, end: 20120627
  3. CETIRIZINE [Concomitant]
     Active Substance: CETIRIZINE HYDROCHLORIDE
     Indication: RASH
     Dosage: 10 MILLIGRAM DAILY;
     Route: 048
     Dates: start: 20120801, end: 20120813
  4. FOLIC ACID. [Concomitant]
     Active Substance: FOLIC ACID
  5. LEVOTHYROXINE [Concomitant]
     Active Substance: LEVOTHYROXINE
  6. GLYCERYL MONO-OCTANOATE [Concomitant]
  7. BENDAMUSTINE [Suspect]
     Active Substance: BENDAMUSTINE
     Indication: CHRONIC LYMPHOCYTIC LEUKAEMIA
     Dosage: GIVEN IN EVERY 2 MONTHS DURATION
     Route: 041
     Dates: start: 20120509, end: 20120807
  8. AZITHROMYCIN [Concomitant]
     Active Substance: AZITHROMYCIN ANHYDROUS
     Dosage: 500 MILLIGRAM DAILY;
     Route: 048
     Dates: start: 20120801, end: 20120806
  9. RANITIDINE [Concomitant]
     Active Substance: RANITIDINE\RANITIDINE HYDROCHLORIDE
  10. PARACETAMOL [Concomitant]
     Active Substance: ACETAMINOPHEN
  11. ACITRETIN [Concomitant]
     Active Substance: ACITRETIN
  12. CASEIN. [Concomitant]
     Active Substance: CASEIN
  13. OFATUMUMAB [Suspect]
     Active Substance: OFATUMUMAB
     Indication: CHRONIC LYMPHOCYTIC LEUKAEMIA
     Dosage: ONCE IN 4 WEEKS
     Route: 041
     Dates: start: 20120509, end: 20120807
  14. ALLOPURINOL. [Concomitant]
     Active Substance: ALLOPURINOL
     Indication: CHRONIC LYMPHOCYTIC LEUKAEMIA
     Route: 048
     Dates: start: 20120704
  15. AMILORIDE [Concomitant]
     Active Substance: AMILORIDE
     Indication: FLUID RETENTION
     Route: 048
     Dates: start: 20120530, end: 20120906
  16. LORATADINE. [Concomitant]
     Active Substance: LORATADINE
     Indication: RASH
     Dosage: 10 MILLIGRAM DAILY;
     Route: 048
     Dates: start: 20120627
  17. ACICLOVIR [Concomitant]
     Active Substance: ACYCLOVIR
  18. PREDNISOLONE. [Concomitant]
     Active Substance: PREDNISOLONE
     Indication: CHRONIC LYMPHOCYTIC LEUKAEMIA
     Route: 048
     Dates: start: 20120627, end: 20120906
  19. SODIUM PHOSPHATE [Concomitant]
     Active Substance: SODIUM PHOSPHATE
  20. ASCORBIC ACID. [Concomitant]
     Active Substance: ASCORBIC ACID
  21. FUROSEMIDE. [Concomitant]
     Active Substance: FUROSEMIDE
     Indication: FLUID RETENTION
     Route: 048
     Dates: start: 20130422
  22. OMEPRAZOLE. [Concomitant]
     Active Substance: OMEPRAZOLE
     Dosage: 20 MILLIGRAM DAILY;
     Route: 048
     Dates: start: 20120627, end: 20121119
  23. CHLORPHENIRAMINE [Concomitant]
     Active Substance: CHLORPHENIRAMINE
  24. METOCLOPRAMIDE. [Concomitant]
     Active Substance: METOCLOPRAMIDE
     Indication: CHRONIC LYMPHOCYTIC LEUKAEMIA
     Route: 048
     Dates: start: 20120704, end: 20120807
  25. G-CSF [Concomitant]
     Active Substance: FILGRASTIM

REACTIONS (9)
  - Lower respiratory tract infection [Fatal]
  - Psoriasis [Not Recovered/Not Resolved]
  - Encephalitis [Fatal]
  - Oedema peripheral [Not Recovered/Not Resolved]
  - Confusional state [Not Recovered/Not Resolved]
  - Encephalopathy [Fatal]
  - Pneumonia [Fatal]
  - Pseudomonas infection [Fatal]
  - Staphylococcal skin infection [Fatal]

NARRATIVE: CASE EVENT DATE: 20120725
